FAERS Safety Report 13105673 (Version 1)
Quarter: 2017Q1

REPORT INFORMATION
  Report Type: Spontaneous
  Country: US (occurrence: US)
  Receive Date: 20170111
  Receipt Date: 20170111
  Transmission Date: 20170428
  Serious: No
  Sender: FDA-Public Use
  Company Number: US-B.I. PHARMACEUTICALS,INC./RIDGEFIELD-2017-BI-000546

PATIENT
  Sex: Female

DRUGS (1)
  1. COMBIVENT [Suspect]
     Active Substance: ALBUTEROL SULFATE\IPRATROPIUM BROMIDE
     Indication: ASTHMA EXERCISE INDUCED
     Dosage: 1-2 INHALATIONS 30 MINUTES PRIOR TO EXERCISE PRN;  FORM STRENGTH: 20 MCG / 100 MCG; FORMULATION: INH
     Route: 055
     Dates: start: 2015

REACTIONS (2)
  - Off label use [Unknown]
  - Incorrect dosage administered [Not Recovered/Not Resolved]

NARRATIVE: CASE EVENT DATE: 2015
